FAERS Safety Report 5361306-5 (Version None)
Quarter: 2007Q2

REPORT INFORMATION
  Report Type: 
  Country: None (occurrence: None)
  Receive Date: 20070612
  Receipt Date: 20070511
  Transmission Date: 20071010
  Serious: Yes (Hospitalization)
  Sender: FDA-Public Use
  Company Number: E2020-01334-SPO-DE

PATIENT
  Age: 62 Year
  Sex: Male

DRUGS (3)
  1. ARICEPT [Suspect]
     Dosage: 10 MG, 1 IN 1 D, ORAL
     Route: 048
     Dates: start: 20070101
  2. LORAZEPAM [Suspect]
     Dosage: 1 DOSAGE FORMS, 1 IN 1 D, ORAL
     Route: 048
     Dates: start: 20070321, end: 20070321
  3. MIRTAZAPINE [Concomitant]

REACTIONS (5)
  - CHOLINERGIC SYNDROME [None]
  - COMA [None]
  - LUNG INFILTRATION [None]
  - MUSCLE ATROPHY [None]
  - RESPIRATORY FAILURE [None]
